FAERS Safety Report 9086316 (Version 1)
Quarter: 2013Q1

REPORT INFORMATION
  Report Type: Report from Study
  Country: US (occurrence: US)
  Receive Date: 20130131
  Receipt Date: 20130131
  Transmission Date: 20140127
  Serious: No
  Sender: FDA-Public Use
  Company Number: US-ABBOTT-12P-163-0997536-00

PATIENT
  Age: 49 Year
  Sex: Female

DRUGS (3)
  1. HUMIRA [Suspect]
     Indication: CROHN^S DISEASE
     Route: 058
     Dates: start: 20120830, end: 20120830
  2. HUMIRA [Suspect]
     Route: 058
     Dates: start: 20120913, end: 20120913
  3. HUMIRA [Suspect]
     Route: 058
     Dates: start: 20121005, end: 20121005

REACTIONS (3)
  - Local swelling [Not Recovered/Not Resolved]
  - Joint stiffness [Not Recovered/Not Resolved]
  - Local swelling [Not Recovered/Not Resolved]
